FAERS Safety Report 8228847-4 (Version None)
Quarter: 2012Q1

REPORT INFORMATION
  Report Type: 
  Country: None (occurrence: None)
  Receive Date: 20120322
  Receipt Date: 20120314
  Transmission Date: 20120608
  Serious: Yes (Other)
  Sender: FDA-Public Use
  Company Number: SE-GLAXOSMITHKLINE-B0790163A

PATIENT
  Age: 48 Year
  Sex: Female

DRUGS (1)
  1. POTIGA [Suspect]
     Indication: PRODUCT USED FOR UNKNOWN INDICATION
     Dosage: 900MG UNKNOWN
     Route: 065

REACTIONS (2)
  - CONVULSION [None]
  - HEADACHE [None]
